FAERS Safety Report 8155022-4 (Version None)
Quarter: 2012Q1

REPORT INFORMATION
  Report Type: 
  Country: None (occurrence: None)
  Receive Date: 20120221
  Receipt Date: 20120221
  Transmission Date: 20120608
  Serious: Yes (Hospitalization)
  Sender: FDA-Public Use
  Company Number: PHHO2011IL019414

PATIENT
  Sex: Female
  Weight: 24.3 kg

DRUGS (1)
  1. ILARIS [Suspect]
     Indication: JUVENILE ARTHRITIS
     Dosage: 90 MG, QMO
     Route: 058
     Dates: start: 20110811

REACTIONS (4)
  - VIRAL INFECTION [None]
  - PYREXIA [None]
  - LEUKOPENIA [None]
  - CONDITION AGGRAVATED [None]
